FAERS Safety Report 10959253 (Version 1)
Quarter: 2015Q1

REPORT INFORMATION
  Report Type: Spontaneous
  Country: FI (occurrence: FI)
  Receive Date: 20150327
  Receipt Date: 20150327
  Transmission Date: 20150721
  Serious: Yes (Other)
  Sender: FDA-Public Use
  Company Number: FI-009507513-1503FIN000788

PATIENT
  Age: 19 Year
  Sex: Female

DRUGS (2)
  1. MERCILON [Suspect]
     Active Substance: DESOGESTREL\ETHINYL ESTRADIOL
     Indication: CONTRACEPTION
     Dosage: ONE PILL EVERY DAY/ FREQUENCY 24 HOURS +/- 3 HOURS)
     Route: 048
     Dates: start: 201407, end: 201502
  2. BURANA [Concomitant]
     Active Substance: IBUPROFEN
     Indication: PAIN

REACTIONS (2)
  - Abortion induced [Unknown]
  - Unintended pregnancy [Recovered/Resolved]

NARRATIVE: CASE EVENT DATE: 201502
